FAERS Safety Report 24598563 (Version 1)
Quarter: 2024Q4

REPORT INFORMATION
  Report Type: Spontaneous
  Country: US (occurrence: US)
  Receive Date: 20241110
  Receipt Date: 20241110
  Transmission Date: 20250115
  Serious: No
  Sender: SANOFI AVENTIS
  Company Number: US-SA-2024SA320102

PATIENT
  Age: 52 Year
  Sex: Male

DRUGS (17)
  1. DUPIXENT [Suspect]
     Active Substance: DUPILUMAB
     Dosage: 300MG; QW
  2. ALPRAZOLAM [Concomitant]
     Active Substance: ALPRAZOLAM
  3. ALLOPURINOL [Concomitant]
     Active Substance: ALLOPURINOL
  4. ATOMOXETINE [Concomitant]
     Active Substance: ATOMOXETINE HYDROCHLORIDE
  5. ALBUTEROL [Concomitant]
     Active Substance: ALBUTEROL
  6. BUPROPION [Concomitant]
     Active Substance: BUPROPION
  7. FLONASE [Concomitant]
     Active Substance: FLUTICASONE PROPIONATE
  8. FLUTICASONE PROPIONATE\SALMETEROL XINAFOATE [Concomitant]
     Active Substance: FLUTICASONE PROPIONATE\SALMETEROL XINAFOATE
  9. GABAPENTIN [Concomitant]
     Active Substance: GABAPENTIN
  10. LAMOTRIGINE [Concomitant]
     Active Substance: LAMOTRIGINE
  11. MELATONIN [Concomitant]
     Active Substance: MELATONIN
  12. MODAFINIL [Concomitant]
     Active Substance: MODAFINIL
  13. RITALIN [Concomitant]
     Active Substance: METHYLPHENIDATE HYDROCHLORIDE
  14. PRAZOSIN [Concomitant]
     Active Substance: PRAZOSIN\PRAZOSIN HYDROCHLORIDE
  15. VENLAFAXINE [Concomitant]
     Active Substance: VENLAFAXINE HYDROCHLORIDE
  16. ZALEPLON [Concomitant]
     Active Substance: ZALEPLON
  17. SILDENAFIL [Concomitant]
     Active Substance: SILDENAFIL

REACTIONS (2)
  - Diplopia [Recovering/Resolving]
  - Vision blurred [Recovering/Resolving]
